FAERS Safety Report 4330079-7 (Version None)
Quarter: 2004Q1

REPORT INFORMATION
  Report Type: 
  Country: None (occurrence: None)
  Receive Date: 20040329
  Receipt Date: 20040316
  Transmission Date: 20041129
  Serious: Yes (Other)
  Sender: FDA-Public Use
  Company Number: HQWYE618408MAR04

PATIENT
  Age: 55 Year
  Sex: Female

DRUGS (2)
  1. PREMARIN [Suspect]
     Indication: OESTROGEN REPLACEMENT THERAPY
     Dosage: 0.625 MG;  ORAL
     Route: 048
  2. MEDROXYPROGESTERONE ACETATE [Concomitant]

REACTIONS (3)
  - BREAST CANCER STAGE I [None]
  - METASTASES TO BREAST [None]
  - METASTASES TO CENTRAL NERVOUS SYSTEM [None]
